FAERS Safety Report 4776329-4 (Version None)
Quarter: 2005Q3

REPORT INFORMATION
  Report Type: 
  Country: None (occurrence: None)
  Receive Date: 20050921
  Receipt Date: 20050906
  Transmission Date: 20060218
  Serious: Yes (Death)
  Sender: FDA-Public Use
  Company Number: 2005P1000276

PATIENT
  Age: 67 Year
  Sex: Male

DRUGS (11)
  1. RETEVASE [Suspect]
     Indication: ACUTE MYOCARDIAL INFARCTION
     Dosage: IV
     Route: 042
     Dates: start: 20050717, end: 20050717
  2. ABCIXIMAB (ABCIXIMAB) [Suspect]
     Indication: ACUTE MYOCARDIAL INFARCTION
     Dosage: IV
     Route: 042
     Dates: start: 20050717, end: 20050717
  3. GLYCERYL TRINITRATE (GLYCERYL TRINITRATE) [Suspect]
     Indication: ACUTE MYOCARDIAL INFARCTION
     Dosage: PO
     Route: 048
     Dates: start: 20050717, end: 20050717
  4. CLOPIDOGREL [Concomitant]
  5. ATORVASTATIN [Concomitant]
  6. ENALAPRIL [Concomitant]
  7. OMEPRAZOLE [Concomitant]
  8. SERETICE MITE [Concomitant]
  9. INYESPRIN [Concomitant]
  10. INSULIN [Concomitant]
  11. ALBUTEROL SULFATE HFA [Concomitant]

REACTIONS (11)
  - ACUTE MYOCARDIAL INFARCTION [None]
  - CARDIO-RESPIRATORY ARREST [None]
  - CORONARY ARTERY THROMBOSIS [None]
  - DILATATION ATRIAL [None]
  - DILATATION VENTRICULAR [None]
  - INTRACARDIAC THROMBUS [None]
  - INTRAVENTRICULAR HAEMORRHAGE [None]
  - RESPIRATORY TRACT INFECTION [None]
  - VENTRICULAR EXTRASYSTOLES [None]
  - VENTRICULAR FIBRILLATION [None]
  - VENTRICULAR TACHYCARDIA [None]
